FAERS Safety Report 4989783-X (Version None)
Quarter: 2006Q2

REPORT INFORMATION
  Report Type: 
  Country: None (occurrence: None)
  Receive Date: 20060428
  Receipt Date: 20060417
  Transmission Date: 20061013
  Serious: Yes (Death)
  Sender: FDA-Public Use
  Company Number: 2006050880

PATIENT
  Age: 72 Year
  Sex: Male

DRUGS (3)
  1. XANAX [Suspect]
     Indication: ILL-DEFINED DISORDER
     Dosage: ORAL
     Route: 048
  2. HALCION [Suspect]
     Indication: ILL-DEFINED DISORDER
     Dosage: ORAL
     Route: 048
  3. ALL OTHER THERAPEUTIC PRODUCT [Concomitant]

REACTIONS (2)
  - COMPLETED SUICIDE [None]
  - LOSS OF CONSCIOUSNESS [None]
